FAERS Safety Report 6615798-1 (Version None)
Quarter: 2010Q1

REPORT INFORMATION
  Report Type: 
  Country: None (occurrence: None)
  Receive Date: 20100305
  Receipt Date: 20100301
  Transmission Date: 20100710
  Serious: Yes (Other)
  Sender: FDA-Public Use
  Company Number: US-TEVA-025811

PATIENT
  Sex: Female

DRUGS (2)
  1. CLARAVIS [Suspect]
     Indication: ACNE CYSTIC
     Dosage: 40 MG, QD
     Route: 048
     Dates: start: 20080114, end: 20080201
  2. CLARAVIS [Suspect]
     Dosage: 40 MG, QD
     Route: 048
     Dates: start: 20080121, end: 20080201

REACTIONS (7)
  - INFLUENZA [None]
  - NAUSEA [None]
  - SINUSITIS [None]
  - SOMNOLENCE [None]
  - UNINTENDED PREGNANCY [None]
  - URINARY INCONTINENCE [None]
  - VOMITING [None]
